FAERS Safety Report 8044780-5 (Version None)
Quarter: 2012Q1

REPORT INFORMATION
  Report Type: 
  Country: None (occurrence: None)
  Receive Date: 20120113
  Receipt Date: 20120112
  Transmission Date: 20120608
  Serious: Yes (Death, Other)
  Sender: FDA-Public Use
  Company Number: US-JNJFOC-20110608983

PATIENT
  Sex: Male
  Weight: 130.18 kg

DRUGS (23)
  1. XANAX [Concomitant]
  2. ZOCOR [Concomitant]
     Route: 048
     Dates: start: 20110322
  3. ADVAIR DISKUS 100/50 [Concomitant]
     Dates: start: 20110322
  4. AMBIEN [Concomitant]
     Route: 048
     Dates: start: 20110322
  5. NEXIUM [Concomitant]
     Route: 048
     Dates: start: 20110322
  6. STELARA [Suspect]
     Route: 058
     Dates: start: 20110520
  7. NORVASC [Concomitant]
     Route: 048
     Dates: start: 20110322
  8. LASIX [Concomitant]
     Route: 048
     Dates: start: 20110322
  9. PHENERGAN [Concomitant]
     Route: 048
     Dates: start: 20110322
  10. SOMA [Concomitant]
  11. NOVOLOG [Concomitant]
     Route: 058
     Dates: start: 20110322
  12. STELARA [Suspect]
     Route: 058
     Dates: start: 20110517
  13. METHOTREXATE [Concomitant]
     Route: 048
  14. KLONOPIN [Concomitant]
  15. CATAPRES [Concomitant]
     Route: 048
     Dates: start: 20110322
  16. PERCOCET [Concomitant]
  17. HUMIRA [Suspect]
     Indication: PSORIASIS
     Route: 058
     Dates: start: 20110325
  18. ZETIA [Concomitant]
     Route: 048
     Dates: start: 20110322
  19. SYNTHROID [Concomitant]
     Route: 048
     Dates: start: 20110322
  20. CLOBETASOL [Concomitant]
     Dates: start: 20110325
  21. STELARA [Suspect]
     Indication: PSORIASIS
     Route: 058
     Dates: start: 20110520
  22. VASOTEC [Concomitant]
     Route: 048
     Dates: start: 20110322
  23. STELARA [Suspect]
     Route: 058
     Dates: start: 20110517

REACTIONS (8)
  - CELLULITIS [None]
  - CARDIO-RESPIRATORY ARREST [None]
  - RENAL FAILURE ACUTE [None]
  - INAPPROPRIATE SCHEDULE OF DRUG ADMINISTRATION [None]
  - SEPSIS [None]
  - WEIGHT DECREASED [None]
  - RASH [None]
  - PANCYTOPENIA [None]
